FAERS Safety Report 18743735 (Version 2)
Quarter: 2021Q1

REPORT INFORMATION
  Report Type: Report from Study
  Country: None (occurrence: US)
  Receive Date: 20210115
  Receipt Date: 20210203
  Transmission Date: 20210419
  Serious: Yes (Hospitalization)
  Sender: FDA-Public Use
  Company Number: US-ABBVIE-20K-163-3588595-00

PATIENT
  Age: 54 Year
  Sex: Female
  Weight: 59.02 kg

DRUGS (5)
  1. LISINOPRIL. [Concomitant]
     Active Substance: LISINOPRIL
     Indication: HYPERTENSION
  2. HUMIRA [Suspect]
     Active Substance: ADALIMUMAB
     Indication: PSORIATIC ARTHROPATHY
     Dosage: CITRATE FREE
     Route: 058
     Dates: start: 201907, end: 20200514
  3. HUMIRA [Suspect]
     Active Substance: ADALIMUMAB
     Indication: ANKYLOSING SPONDYLITIS
     Dosage: CITRATE FREE?2 IN MO
     Route: 058
     Dates: start: 20200611
  4. LYRICA [Concomitant]
     Active Substance: PREGABALIN
     Indication: BACK PAIN
  5. LYRICA [Concomitant]
     Active Substance: PREGABALIN
     Indication: PAIN MANAGEMENT

REACTIONS (3)
  - Postoperative wound infection [Recovering/Resolving]
  - Psoriatic arthropathy [Recovered/Resolved with Sequelae]
  - Spondylolisthesis [Recovered/Resolved]

NARRATIVE: CASE EVENT DATE: 201912
